FAERS Safety Report 17054107 (Version 1)
Quarter: 2019Q4

REPORT INFORMATION
  Report Type: Report from Study
  Country: US (occurrence: US)
  Receive Date: 20191120
  Receipt Date: 20191120
  Transmission Date: 20200122
  Serious: Yes (Hospitalization, Other)
  Sender: FDA-Public Use
  Company Number: US-PFIZER INC-2019474876

PATIENT
  Age: 71 Year
  Sex: Male

DRUGS (13)
  1. TRAMADOL. [Concomitant]
     Active Substance: TRAMADOL
     Dosage: 50 MG, UNK
  2. VALACYCLOVIR [Concomitant]
     Active Substance: VALACYCLOVIR HYDROCHLORIDE
     Dosage: 500 MG, UNK
  3. VENETOCLAX. [Suspect]
     Active Substance: VENETOCLAX
     Dosage: PER PROTOCOL DAILY
     Route: 048
     Dates: start: 20190914, end: 20191002
  4. CEFPODOXIME [Concomitant]
     Active Substance: CEFPODOXIME
     Dosage: 200 MG, UNK
  5. FAMOTIDINE. [Concomitant]
     Active Substance: FAMOTIDINE
     Dosage: 20 MG, UNK
  6. VORICONAZOLE. [Concomitant]
     Active Substance: VORICONAZOLE
     Dosage: 200 MG, UNK
  7. ONDANSETRON [Concomitant]
     Active Substance: ONDANSETRON
     Dosage: 8 MG, UNK
  8. GEMTUZUMAB OZOGAMICIN [Suspect]
     Active Substance: GEMTUZUMAB OZOGAMICIN
     Dosage: 4.5 MG, D8
     Route: 042
     Dates: start: 20190920
  9. OLANZAPINE. [Concomitant]
     Active Substance: OLANZAPINE
     Dosage: 2.5 MG, UNK
  10. KLOR-CON [Concomitant]
     Active Substance: POTASSIUM CHLORIDE
     Dosage: 8 MEQ, UNK
  11. SERTRALINE [Concomitant]
     Active Substance: SERTRALINE HYDROCHLORIDE
     Dosage: 50 MG, UNK
  12. SODIUM CHLORIDE. [Concomitant]
     Active Substance: SODIUM CHLORIDE
     Dosage: 0.9 %, UNK
  13. AZACITIDINE. [Suspect]
     Active Substance: AZACITIDINE
     Dosage: 75 MG/M2, 7DAYS
     Route: 042
     Dates: start: 20190913, end: 20190919

REACTIONS (2)
  - Febrile neutropenia [Unknown]
  - Enterocolitis [Recovered/Resolved]

NARRATIVE: CASE EVENT DATE: 20191030
